FAERS Safety Report 18113612 (Version 7)
Quarter: 2022Q4

REPORT INFORMATION
  Report Type: Other
  Country: GB (occurrence: None)
  Receive Date: 20200805
  Receipt Date: 20221110
  Transmission Date: 20230113
  Serious: Yes (Hospitalization)
  Sender: FDA-Public Use
  Company Number: GB-ROCHE-2354149

PATIENT
  Age: 66 Year
  Sex: Female

DRUGS (30)
  1. TRASTUZUMAB [Suspect]
     Active Substance: TRASTUZUMAB
     Indication: HER2 positive breast cancer
     Route: 041
     Dates: start: 20180302
  2. TRASTUZUMAB [Suspect]
     Active Substance: TRASTUZUMAB
     Dosage: SUBSEQUENT DOSE (8 MG/KG, ONCE 3 WEEK) OF TRASTUZUMAB ON 03/MAR/2018 TO 03/MAR/2018.?SUBSEQUENT DOSE
     Route: 042
     Dates: start: 20180303, end: 20180303
  3. PERTUZUMAB [Suspect]
     Active Substance: PERTUZUMAB
     Indication: HER2 positive breast cancer
     Route: 042
     Dates: start: 20180323, end: 20181130
  4. PERTUZUMAB [Suspect]
     Active Substance: PERTUZUMAB
     Route: 042
     Dates: start: 20180302, end: 20180302
  5. ADO-TRASTUZUMAB EMTANSINE [Suspect]
     Active Substance: ADO-TRASTUZUMAB EMTANSINE
     Indication: HER2 positive breast cancer
     Dosage: SUBSEQUENT DOSE (160 MG, ONCE 3 WEEK) OF TRASTUZUMAB EMTANSINE ON 08/JUN/2019 TO 22/FEB/2020
     Route: 042
     Dates: start: 20190427, end: 20190518
  6. ADO-TRASTUZUMAB EMTANSINE [Suspect]
     Active Substance: ADO-TRASTUZUMAB EMTANSINE
     Route: 042
     Dates: start: 20190202, end: 20190406
  7. DOCETAXEL [Suspect]
     Active Substance: DOCETAXEL
     Indication: HER2 positive breast cancer
     Dosage: SUBSEQUENT DOSE OF  (130 MG, ONCE 3 WEEK) ON 23/MAR/2018 TO 24/MAY/2018, ON CYCLE 6.?SUBSEQUENT DOSE
     Route: 042
     Dates: start: 20180302, end: 20180524
  8. DOCETAXEL [Suspect]
     Active Substance: DOCETAXEL
     Dosage: SUBSEQUENT DOSE OF  (120 MG, ONCE 3 WEEK) ON 25/MAY/2018 TO 245MAY/2018, ON CYCLE 6.
     Route: 042
     Dates: start: 20180525
  9. DOCETAXEL [Suspect]
     Active Substance: DOCETAXEL
     Dosage: SUBSEQUENT DOSE OF  (100 MG, ONCE 3 WEEK) ON 25/MAR/2018 TO 25/MAR/2018, ON CYCLE 6.
     Route: 042
     Dates: start: 20180303, end: 20180322
  10. DOCETAXEL [Suspect]
     Active Substance: DOCETAXEL
     Route: 042
     Dates: start: 20180615, end: 20180615
  11. ERIBULIN MESYLATE [Suspect]
     Active Substance: ERIBULIN MESYLATE
     Indication: HER2 positive breast cancer
     Dosage: DAY 1 AND DAY 8 OF 3 WEEK CYCLE.?SUBSEQUENT DOSE (1.67 MG, ONCE 3 WEEK) OF TRASTUZUMAB ON 04/AUG/202
     Route: 042
     Dates: start: 20210608, end: 20210705
  12. CAPECITABINE [Suspect]
     Active Substance: CAPECITABINE
     Indication: HER2 positive breast cancer
     Route: 048
     Dates: start: 20211021, end: 20220203
  13. DEXAMETHASONE [Concomitant]
     Active Substance: DEXAMETHASONE
     Indication: Prophylaxis
     Route: 048
     Dates: start: 20180323, end: 20180325
  14. DEXAMETHASONE [Concomitant]
     Active Substance: DEXAMETHASONE
     Route: 048
     Dates: start: 20180416, end: 20180418
  15. DEXAMETHASONE [Concomitant]
     Active Substance: DEXAMETHASONE
     Route: 048
     Dates: start: 20180504, end: 20180506
  16. DEXAMETHASONE [Concomitant]
     Active Substance: DEXAMETHASONE
     Route: 048
     Dates: start: 20180525, end: 20180527
  17. FILGRASTIM [Concomitant]
     Active Substance: FILGRASTIM
     Indication: Prophylaxis
     Route: 058
     Dates: start: 20180324, end: 20180330
  18. FILGRASTIM [Concomitant]
     Active Substance: FILGRASTIM
     Route: 058
     Dates: start: 20180417, end: 20180423
  19. FILGRASTIM [Concomitant]
     Active Substance: FILGRASTIM
     Route: 058
     Dates: start: 20180505, end: 20180511
  20. FILGRASTIM [Concomitant]
     Active Substance: FILGRASTIM
     Route: 058
     Dates: start: 20180526, end: 20180601
  21. HYPROMELLOSES [Concomitant]
     Active Substance: HYPROMELLOSES
     Route: 047
     Dates: start: 20180615
  22. ALENDRONIC ACID [Concomitant]
     Active Substance: ALENDRONIC ACID
     Route: 048
     Dates: start: 20100517
  23. ALENDRONIC ACID [Concomitant]
     Active Substance: ALENDRONIC ACID
     Route: 048
  24. ACETAMINOPHEN [Concomitant]
     Active Substance: ACETAMINOPHEN
     Route: 048
     Dates: start: 20100730
  25. LOPERAMIDE [Concomitant]
     Active Substance: LOPERAMIDE
     Indication: Diarrhoea
     Route: 048
     Dates: start: 20180323
  26. OMEPRAZOLE [Concomitant]
     Active Substance: OMEPRAZOLE
     Indication: Gastrooesophageal reflux disease
     Route: 048
     Dates: start: 201803
  27. LEVOFLOXACIN [Concomitant]
     Active Substance: LEVOFLOXACIN
     Indication: Pyrexia
     Route: 048
     Dates: start: 20200205, end: 20200212
  28. LEVOFLOXACIN [Concomitant]
     Active Substance: LEVOFLOXACIN
     Indication: Respiratory tract infection
     Route: 048
     Dates: start: 20180827, end: 20180902
  29. RAMIPRIL [Concomitant]
     Active Substance: RAMIPRIL
     Route: 048
     Dates: start: 20210406, end: 20210412
  30. CANDESARTAN [Concomitant]
     Active Substance: CANDESARTAN
     Route: 048
     Dates: start: 20210413

REACTIONS (2)
  - Urinary tract infection [Recovered/Resolved]
  - Pleural effusion [Recovered/Resolved]

NARRATIVE: CASE EVENT DATE: 20190410
